FAERS Safety Report 14822405 (Version 2)
Quarter: 2018Q2

REPORT INFORMATION
  Report Type: Spontaneous
  Country: US (occurrence: US)
  Receive Date: 20180427
  Receipt Date: 20180515
  Transmission Date: 20180711
  Serious: Yes (Other)
  Sender: FDA-Public Use
  Company Number: US-PFIZER INC-2018169666

PATIENT
  Age: 6 Decade
  Sex: Female

DRUGS (2)
  1. LIPITOR [Suspect]
     Active Substance: ATORVASTATIN CALCIUM
     Indication: BLOOD CHOLESTEROL INCREASED
     Dosage: 10 MG, 1X/DAY
     Route: 048
     Dates: start: 2015, end: 20180413
  2. LOSARTAN AND HYDROCHLOROTHIAZIDE [Concomitant]
     Active Substance: HYDROCHLOROTHIAZIDE\LOSARTAN POTASSIUM
     Indication: HYPERTENSION
     Dosage: 100MG/12.5MG, ^[HYDROCHLOROTHIAZIDE 12.5MG]/[ LOSARTAN POTASSIUM 100MG]^

REACTIONS (9)
  - Gastrointestinal viral infection [Unknown]
  - Carpal tunnel syndrome [Unknown]
  - Nausea [Unknown]
  - Frustration tolerance decreased [Unknown]
  - Neuropathy peripheral [Recovering/Resolving]
  - Malaise [Unknown]
  - Diarrhoea [Unknown]
  - Vomiting [Unknown]
  - Weight fluctuation [Unknown]
